FAERS Safety Report 5397019-3 (Version None)
Quarter: 2007Q3

REPORT INFORMATION
  Report Type: 
  Country: None (occurrence: None)
  Receive Date: 20070725
  Receipt Date: 20070713
  Transmission Date: 20080115
  Serious: Yes (Life-Threatening, Hospitalization)
  Sender: FDA-Public Use
  Company Number: US-SHR-US-2007-020885

PATIENT
  Age: 61 Year
  Sex: Female
  Weight: 59 kg

DRUGS (4)
  1. BETASERON [Suspect]
     Indication: RELAPSING-REMITTING MULTIPLE SCLEROSIS
     Dosage: UNK, UNK
     Route: 058
     Dates: start: 20041218, end: 20050412
  2. AVONEX [Concomitant]
  3. PROVIGIL [Concomitant]
  4. BACLOFEN [Concomitant]

REACTIONS (1)
  - COELIAC DISEASE [None]
